FAERS Safety Report 10813754 (Version 2)
Quarter: 2015Q1

REPORT INFORMATION
  Report Type: Spontaneous
  Country: BR (occurrence: BR)
  Receive Date: 20150218
  Receipt Date: 20150323
  Transmission Date: 20150721
  Serious: Yes (Death, Life-Threatening, Other)
  Sender: FDA-Public Use
  Company Number: BR-JNJFOC-20150206972

PATIENT
  Age: 47 Year
  Sex: Female

DRUGS (29)
  1. XARELTO [Suspect]
     Active Substance: RIVAROXABAN
     Indication: PULMONARY EMBOLISM
     Route: 048
     Dates: start: 20141212, end: 20150107
  2. POTASSIUM CHLORIDE. [Concomitant]
     Active Substance: POTASSIUM CHLORIDE
     Route: 050
     Dates: start: 20150110, end: 20150115
  3. SOLU-MEDROL [Concomitant]
     Active Substance: METHYLPREDNISOLONE SODIUM SUCCINATE
     Route: 042
     Dates: start: 20150110, end: 20150115
  4. ZOFRAN [Concomitant]
     Active Substance: ONDANSETRON HYDROCHLORIDE
     Route: 051
     Dates: start: 20150110, end: 20150115
  5. PANTOZOL [Concomitant]
     Active Substance: PANTOPRAZOLE SODIUM
     Route: 051
     Dates: start: 20150110, end: 20150115
  6. TRAMAL [Concomitant]
     Active Substance: TRAMADOL
     Route: 042
     Dates: start: 20150110, end: 20150115
  7. FENTANYL. [Concomitant]
     Active Substance: FENTANYL
     Route: 051
     Dates: start: 20150110, end: 20150115
  8. DESMOPRESSIN [Concomitant]
     Active Substance: DESMOPRESSIN
     Route: 045
     Dates: start: 20150110, end: 20150115
  9. DIGESAN [Concomitant]
     Active Substance: BROMOPRIDE
     Route: 051
     Dates: start: 20150110, end: 20150115
  10. DIMORF [Concomitant]
     Active Substance: MORPHINE SULFATE
     Route: 042
     Dates: start: 20150110, end: 20150115
  11. BAMIFIX [Concomitant]
     Active Substance: BAMIFYLLINE HYDROCHLORIDE
     Route: 050
     Dates: start: 20150110, end: 20150115
  12. PRECEDEX [Concomitant]
     Active Substance: DEXMEDETOMIDINE HYDROCHLORIDE
     Route: 051
     Dates: start: 20150110, end: 20150115
  13. XARELTO [Suspect]
     Active Substance: RIVAROXABAN
     Indication: ANTIPHOSPHOLIPID ANTIBODIES
     Route: 048
     Dates: start: 20141212, end: 20150107
  14. LACTOBACILLUS ACIDOPHILUS [Concomitant]
     Active Substance: LACTOBACILLUS ACIDOPHILUS
     Route: 050
     Dates: start: 20150110, end: 20150115
  15. RIVOTRIL [Concomitant]
     Active Substance: CLONAZEPAM
     Route: 050
     Dates: start: 20150110, end: 20150115
  16. LACTATED RINGERS [Concomitant]
     Active Substance: CALCIUM CHLORIDE\POTASSIUM CHLORIDE\SODIUM CHLORIDE\SODIUM LACTATE
     Route: 051
     Dates: start: 20150110, end: 20150115
  17. MERONEM [Concomitant]
     Active Substance: MEROPENEM
     Route: 042
     Dates: start: 20150110, end: 20150115
  18. NOVALGIN [Concomitant]
     Active Substance: METAMIZOLE SODIUM
     Route: 051
     Dates: start: 20150110, end: 20150115
  19. VANCOMYCIN [Concomitant]
     Active Substance: VANCOMYCIN
     Route: 042
     Dates: start: 20150110, end: 20150115
  20. CARBOMER [Concomitant]
     Active Substance: CARBOMER
     Route: 047
     Dates: start: 20150110, end: 20150115
  21. POTASSIUM PHOSPHATE [Concomitant]
     Active Substance: POTASSIUM PHOSPHATE
     Route: 051
     Dates: start: 20150110, end: 20150115
  22. DEPURAN [Concomitant]
     Route: 050
     Dates: start: 20150110, end: 20150115
  23. ENALAPRIL [Concomitant]
     Active Substance: ENALAPRIL
     Route: 050
     Dates: start: 20150110, end: 20150115
  24. SEROQUEL [Concomitant]
     Active Substance: QUETIAPINE FUMARATE
     Route: 050
     Dates: start: 20150110, end: 20150115
  25. SODIUM CHLORIDE. [Concomitant]
     Active Substance: SODIUM CHLORIDE
     Route: 051
     Dates: start: 20150110, end: 20150115
  26. XARELTO [Suspect]
     Active Substance: RIVAROXABAN
     Indication: EMBOLISM VENOUS
     Route: 048
     Dates: start: 20141212, end: 20150107
  27. LYRICA [Concomitant]
     Active Substance: PREGABALIN
     Route: 050
     Dates: start: 20150110, end: 20150115
  28. NOREPINEPHRINE [Concomitant]
     Active Substance: NOREPINEPHRINE\NOREPINEPHRINE BITARTRATE
     Route: 051
     Dates: start: 20150110, end: 20150115
  29. ZOLOFT [Concomitant]
     Active Substance: SERTRALINE HYDROCHLORIDE
     Route: 050
     Dates: start: 20150110, end: 20150115

REACTIONS (5)
  - Ischaemic stroke [Fatal]
  - Brain death [Fatal]
  - Circulatory collapse [Fatal]
  - Pneumothorax [Recovered/Resolved]
  - Product use issue [Unknown]

NARRATIVE: CASE EVENT DATE: 20150106
